FAERS Safety Report 10758295 (Version 4)
Quarter: 2015Q2

REPORT INFORMATION
  Report Type: Spontaneous
  Country: US (occurrence: US)
  Receive Date: 20150203
  Receipt Date: 20150624
  Transmission Date: 20150821
  Serious: Yes (Death, Hospitalization, Other)
  Sender: FDA-Public Use
  Company Number: US-MERCK-1502USA001089

PATIENT
  Sex: Male
  Weight: 116.55 kg

DRUGS (5)
  1. JANUMET [Suspect]
     Active Substance: METFORMIN HYDROCHLORIDE\SITAGLIPTIN PHOSPHATE
     Route: 048
  2. JANUMET XR [Suspect]
     Active Substance: METFORMIN HYDROCHLORIDE\SITAGLIPTIN PHOSPHATE
     Route: 048
  3. JANUVIA [Suspect]
     Active Substance: SITAGLIPTIN PHOSPHATE
     Dosage: 100 MG, QD
     Route: 048
     Dates: start: 200912, end: 20130318
  4. JUVISYNC [Suspect]
     Active Substance: SIMVASTATIN\SITAGLIPTIN PHOSPHATE
     Route: 048
  5. JANUVIA [Suspect]
     Active Substance: SITAGLIPTIN PHOSPHATE
     Indication: TYPE 2 DIABETES MELLITUS
     Dosage: 100 MG, QD
     Route: 048
     Dates: start: 20070711, end: 200911

REACTIONS (59)
  - Urethral dilatation [Unknown]
  - Arrhythmia [Unknown]
  - Ascites [Unknown]
  - Anaemia [Unknown]
  - Cystoscopy [Unknown]
  - Increased tendency to bruise [Unknown]
  - Aortic arteriosclerosis [Unknown]
  - Spinal column stenosis [Unknown]
  - Anxiety [Unknown]
  - Pleural effusion [Unknown]
  - Headache [Unknown]
  - Pancreatic carcinoma metastatic [Fatal]
  - Benign prostatic hyperplasia [Unknown]
  - Upper gastrointestinal haemorrhage [Unknown]
  - Renal failure [Unknown]
  - Dyspnoea [Unknown]
  - Libido decreased [Unknown]
  - Computerised tomogram abnormal [Unknown]
  - Gout [Unknown]
  - Poor dental condition [Unknown]
  - Pneumonia [Unknown]
  - Splenectomy [Unknown]
  - Chest injury [Unknown]
  - Road traffic accident [Unknown]
  - Abdominal pain [Unknown]
  - Sleep apnoea syndrome [Unknown]
  - Stapedectomy [Unknown]
  - VIIth nerve paralysis [Unknown]
  - Urinary incontinence [Unknown]
  - Aortic stenosis [Unknown]
  - Cystoscopy [Unknown]
  - Gastric ulcer [Unknown]
  - Erectile dysfunction [Unknown]
  - Renal cyst [Unknown]
  - Cardiac murmur [Unknown]
  - Gait disturbance [Unknown]
  - Metastases to liver [Unknown]
  - Cardiac failure congestive [Unknown]
  - Depression [Unknown]
  - Visual impairment [Unknown]
  - Anaemia [Unknown]
  - Hypertension [Unknown]
  - Radiotherapy [Unknown]
  - Stomatitis [Unknown]
  - Hyperlipidaemia [Unknown]
  - Arthritis [Unknown]
  - Pancreatectomy [Unknown]
  - Syncope [Unknown]
  - Coronary artery disease [Unknown]
  - Dizziness [Unknown]
  - Oedema peripheral [Unknown]
  - Type 2 diabetes mellitus [Unknown]
  - Venous repair [Unknown]
  - Anaemia [Unknown]
  - Rib fracture [Unknown]
  - Spinal nerve stimulator implantation [Unknown]
  - Urethral meatus stenosis [Unknown]
  - Bronchial hyperreactivity [Unknown]
  - Oral surgery [Unknown]

NARRATIVE: CASE EVENT DATE: 20070827
